FAERS Safety Report 6464375-4 (Version None)
Quarter: 2009Q4

REPORT INFORMATION
  Report Type: 
  Country: None (occurrence: None)
  Receive Date: 20091130
  Receipt Date: 20091130
  Transmission Date: 20100525
  Serious: Yes (Other)
  Sender: FDA-Public Use
  Company Number: None

PATIENT
  Age: 79 Year
  Sex: Female
  Weight: 62.5964 kg

DRUGS (3)
  1. PROAIR HFA [Suspect]
     Indication: ASTHMA
     Dosage: 2 PUFFS UP TO 4X DAILY
     Route: 055
     Dates: start: 20090115, end: 20090330
  2. PROAIR HFA [Suspect]
     Indication: CHRONIC OBSTRUCTIVE PULMONARY DISEASE
     Dosage: 2 PUFFS UP TO 4X DAILY
     Route: 055
     Dates: start: 20090115, end: 20090330
  3. ADVAIR DISKUS 100/50 [Concomitant]

REACTIONS (11)
  - BRONCHIAL IRRITATION [None]
  - BRONCHIAL OEDEMA [None]
  - BRONCHITIS [None]
  - DRUG INEFFECTIVE [None]
  - DYSPHONIA [None]
  - DYSPNOEA EXERTIONAL [None]
  - DYSURIA [None]
  - GENERAL PHYSICAL HEALTH DETERIORATION [None]
  - INCREASED BRONCHIAL SECRETION [None]
  - PRODUCT QUALITY ISSUE [None]
  - URINARY RETENTION [None]
